FAERS Safety Report 9147339 (Version 5)
Quarter: 2013Q2

REPORT INFORMATION
  Report Type: Report from Study
  Country: CA (occurrence: CA)
  Receive Date: 20130307
  Receipt Date: 20130508
  Transmission Date: 20140414
  Serious: Yes (Hospitalization)
  Sender: FDA-Public Use
  Company Number: CA-GLAXOSMITHKLINE-A1014076A

PATIENT
  Age: 42 Year
  Sex: Male

DRUGS (6)
  1. VOTRIENT [Suspect]
     Indication: SARCOMA
     Dosage: 800MG PER DAY
     Route: 048
     Dates: start: 20130213
  2. HYCODAN [Concomitant]
  3. TYLENOL COLD [Concomitant]
  4. RABEPRAZOLE [Concomitant]
  5. B12 [Concomitant]
  6. PERCOCET [Concomitant]

REACTIONS (5)
  - Pneumothorax [Not Recovered/Not Resolved]
  - Pulmonary mass [Not Recovered/Not Resolved]
  - Dyspnoea [Not Recovered/Not Resolved]
  - Ear infection [Unknown]
  - Lung operation [Not Recovered/Not Resolved]
